FAERS Safety Report 5881633-2 (Version None)
Quarter: 2008Q3

REPORT INFORMATION
  Report Type: 
  Country: None (occurrence: None)
  Receive Date: 20080912
  Receipt Date: 20080707
  Transmission Date: 20090109
  Serious: No
  Sender: FDA-Public Use
  Company Number: US-ABBOTT-08P-163-0461329-00

PATIENT
  Sex: Female
  Weight: 63.56 kg

DRUGS (3)
  1. HUMIRA [Suspect]
     Indication: ARTHRITIS
     Route: 058
  2. CELECOXIB [Concomitant]
     Indication: ARTHRITIS
     Route: 048
  3. VICODIN [Concomitant]
     Indication: ARTHRALGIA
     Dosage: 3-4 PER DAY TOTAL DAILY DOSE,  1 TAB AS NEEDED UNIT DOSE
     Route: 048
     Dates: start: 20030101

REACTIONS (1)
  - ARTHROPOD BITE [None]
